FAERS Safety Report 13755167 (Version 1)
Quarter: 2017Q3

REPORT INFORMATION
  Report Type: Spontaneous
  Country: BE (occurrence: BE)
  Receive Date: 20170714
  Receipt Date: 20170714
  Transmission Date: 20171127
  Serious: Yes (Hospitalization, Other)
  Sender: FDA-Public Use
  Company Number: BE-APOTEX-2017AP014972

PATIENT
  Age: 58 Year
  Sex: Male

DRUGS (1)
  1. CLOPIDOGREL APOTEX [Suspect]
     Active Substance: CLOPIDOGREL BISULFATE
     Indication: CEREBROVASCULAR ACCIDENT
     Dosage: UNK
     Route: 065

REACTIONS (3)
  - Factor VIII deficiency [Recovered/Resolved]
  - Anaemia [Unknown]
  - Acquired haemophilia [Recovered/Resolved]
